FAERS Safety Report 6083262-7 (Version None)
Quarter: 2009Q1

REPORT INFORMATION
  Report Type: 
  Country: None (occurrence: None)
  Receive Date: 20090213
  Receipt Date: 20090213
  Transmission Date: 20090719
  Serious: Yes (Life-Threatening)
  Sender: FDA-Public Use
  Company Number: None

PATIENT
  Age: 51 Year
  Sex: Female
  Weight: 62.5964 kg

DRUGS (1)
  1. INFED [Suspect]
     Indication: ANAEMIA
     Dosage: 1550MG IV
     Route: 042
     Dates: start: 20090127, end: 20090127

REACTIONS (11)
  - BLOOD PRESSURE INCREASED [None]
  - DISORIENTATION [None]
  - DIZZINESS [None]
  - DYSPNOEA [None]
  - LOSS OF CONSCIOUSNESS [None]
  - MOVEMENT DISORDER [None]
  - NAUSEA [None]
  - PALPITATIONS [None]
  - SPEECH DISORDER [None]
  - STRESS [None]
  - URINARY INCONTINENCE [None]
